FAERS Safety Report 7338644-X (Version None)
Quarter: 2011Q1

REPORT INFORMATION
  Report Type: 
  Country: None (occurrence: None)
  Receive Date: 20110210
  Receipt Date: 20101019
  Transmission Date: 20110831
  Serious: No
  Sender: FDA-Public Use
  Company Number: 1000016911

PATIENT
  Age: 57 Year
  Sex: Female

DRUGS (10)
  1. TOPIRAMATE (TOPIRAMATE) (TOPIRAMATE) [Concomitant]
  2. NASONEX (MOMETASONE FUROATE) (MOMETASONE FUROATE) [Concomitant]
  3. RESTASIS (CICLOSPORIN) (CICLOSPORIN) [Concomitant]
  4. SYNTHROID (LEVOTHYROXINE SODIUM) (LEVOTHYROXINE SODIUM) [Concomitant]
  5. PROTONIX [Concomitant]
  6. TOPROL (METOPROLOL SUCCINATE) (METOPROLOL SUCCINATE) [Concomitant]
  7. LASIX [Concomitant]
  8. SINGULAIR (MONTELUKAST) (MONTELUKAST) [Concomitant]
  9. SAVELLA [Suspect]
     Indication: FIBROMYALGIA
     Dosage: 12.5 MG (12.5 MG, 1 IN 1 D), ORAL, 25 MG (12.5 MG, 2 IN 1 D), ORAL
     Route: 048
     Dates: start: 20101010, end: 20101012
  10. SAVELLA [Suspect]
     Indication: FIBROMYALGIA
     Dosage: 12.5 MG (12.5 MG, 1 IN 1 D), ORAL, 25 MG (12.5 MG, 2 IN 1 D), ORAL
     Route: 048
     Dates: start: 20101013

REACTIONS (2)
  - PRURITUS [None]
  - NAUSEA [None]
